FAERS Safety Report 10543978 (Version 2)
Quarter: 2014Q4

REPORT INFORMATION
  Report Type: Spontaneous
  Country: JP (occurrence: JP)
  Receive Date: 20141027
  Receipt Date: 20141110
  Transmission Date: 20150529
  Serious: Yes (Hospitalization)
  Sender: FDA-Public Use
  Company Number: JP-PFIZER INC-2014290806

PATIENT
  Age: 49 Year
  Sex: Male

DRUGS (1)
  1. SILDENAFIL CITRATE. [Suspect]
     Active Substance: SILDENAFIL CITRATE
     Indication: ERECTILE DYSFUNCTION
     Dosage: UNK
     Route: 048

REACTIONS (2)
  - Drug interaction [Recovered/Resolved]
  - Ventricular tachycardia [Recovered/Resolved]
